FAERS Safety Report 17242417 (Version 2)
Quarter: 2020Q1

REPORT INFORMATION
  Report Type: Spontaneous
  Country: SE (occurrence: SE)
  Receive Date: 20200107
  Receipt Date: 20200206
  Transmission Date: 20200409
  Serious: Yes (Disabling)
  Sender: FDA-Public Use
  Company Number: SE-MYLANLABS-2020M1001219

PATIENT
  Age: 76 Year
  Sex: Male

DRUGS (17)
  1. ALIMTA [Suspect]
     Active Substance: PEMETREXED DISODIUM
     Indication: LUNG ADENOCARCINOMA
     Dosage: KUR 1 (1050MG, TOTAL)
     Route: 042
     Dates: start: 20190702, end: 20190702
  2. MOLLIPECT                          /00362301/ [Concomitant]
     Indication: PRODUCT USED FOR UNKNOWN INDICATION
     Dosage: VID BEHOV, H?GST 4 GGR/DAG
     Route: 065
     Dates: start: 20171030
  3. LOCOID [Concomitant]
     Active Substance: HYDROCORTISONE BUTYRATE
     Indication: PRODUCT USED FOR UNKNOWN INDICATION
     Dosage: VID BEHOV EN GANG DAGLIGEN
     Route: 065
     Dates: start: 20190524
  4. EMOVAT [Concomitant]
     Indication: PRODUCT USED FOR UNKNOWN INDICATION
     Dosage: EN GANG DAGLIGEN VID BEHOV
     Route: 065
     Dates: start: 20190521
  5. ATORVASTATIN [Suspect]
     Active Substance: ATORVASTATIN
     Indication: PRODUCT USED FOR UNKNOWN INDICATION
     Dosage: UNK
     Route: 048
     Dates: start: 2017, end: 20190809
  6. MIRAPEXIN [Concomitant]
     Active Substance: PRAMIPEXOLE
     Indication: PRODUCT USED FOR UNKNOWN INDICATION
     Dosage: 1 TABL VID BEHOV (0.18 MG)
     Dates: start: 20170912
  7. CARBOPLATIN. [Suspect]
     Active Substance: CARBOPLATIN
     Indication: LUNG ADENOCARCINOMA
     Dosage: 675 MG, ONCE/SINGLE (KUR 2)
     Route: 042
     Dates: start: 20190702, end: 20190702
  8. ZOPICLONE [Concomitant]
     Active Substance: ZOPICLONE
     Indication: PRODUCT USED FOR UNKNOWN INDICATION
     Dosage: 1 TABL VID BEHOV TILL NATTEN
     Route: 065
     Dates: start: 20170413
  9. TRIOBE                             /01079901/ [Concomitant]
     Indication: PRODUCT USED FOR UNKNOWN INDICATION
     Dosage: 1 DOSAGE FORM, QD
     Route: 065
     Dates: start: 20190625
  10. CARBOPLATIN. [Suspect]
     Active Substance: CARBOPLATIN
     Dosage: 675 MG, ONCE/SINGLE (KUR 2)
     Route: 042
     Dates: start: 20190724, end: 20190724
  11. ALIMTA [Suspect]
     Active Substance: PEMETREXED DISODIUM
     Dosage: KUR 2 (1050 MILLIGRAM, TOTAL)
     Route: 042
     Dates: start: 20190724, end: 20190724
  12. TROMBYL [Concomitant]
     Active Substance: ASPIRIN
     Indication: PRODUCT USED FOR UNKNOWN INDICATION
     Dosage: 75 MILLIGRAM, QD
     Route: 065
     Dates: start: 20170414
  13. IMOVANE [Concomitant]
     Active Substance: ZOPICLONE
     Dosage: 1 TABL VID BEHOV (5MG)
     Route: 065
     Dates: start: 20190625
  14. DICLOFENAC [Concomitant]
     Active Substance: DICLOFENAC
     Indication: PRODUCT USED FOR UNKNOWN INDICATION
     Dosage: 1 TABLETT VID BEHOV, HOGST 3/DYGN (50MG)
     Route: 065
     Dates: start: 20180507
  15. OXASCAND [Concomitant]
     Active Substance: OXAZEPAM
     Dosage: 1 TAB VID BEHOV, HOGST 3 TAB/DYGN (5MG)
     Route: 065
     Dates: start: 20190515
  16. DOXAZOSIN [Concomitant]
     Active Substance: DOXAZOSIN MESYLATE
     Indication: PRODUCT USED FOR UNKNOWN INDICATION
     Dosage: 4 MILLIGRAM, QD
     Route: 065
     Dates: start: 20181106
  17. LOSARTAN AND HYDROCHLOROTHIAZIDE [Concomitant]
     Active Substance: HYDROCHLOROTHIAZIDE\LOSARTAN POTASSIUM
     Indication: PRODUCT USED FOR UNKNOWN INDICATION
     Dosage: STYRKA 100MG/25 MG (1DF, QD)
     Dates: start: 20180508

REACTIONS (2)
  - Myopathy [Not Recovered/Not Resolved]
  - Polyneuropathy [Not Recovered/Not Resolved]

NARRATIVE: CASE EVENT DATE: 20190702
